FAERS Safety Report 10243827 (Version 1)
Quarter: 2014Q2

REPORT INFORMATION
  Report Type: Spontaneous
  Country: GB (occurrence: None)
  Receive Date: 20140616
  Receipt Date: 20140616
  Transmission Date: 20141212
  Serious: Yes (Congenital Anomaly)
  Sender: FDA-Public Use
  Company Number: AUR-APL-2014-06336

PATIENT
  Sex: Female

DRUGS (4)
  1. LAMOTRIGINE (LAMOTRIGINE) UNKNOWN [Suspect]
     Indication: EPILEPSY
     Route: 064
  2. FOLIC ACID (FOLIC ACID) [Concomitant]
  3. PIRITON (CHLORPHENAMINE MALEATE) [Concomitant]
  4. VITAMIN K /00032401/ (PHYTOMENADIONE) [Concomitant]

REACTIONS (2)
  - Haemorrhage neonatal [None]
  - Foetal exposure during pregnancy [None]
